FAERS Safety Report 22968545 (Version 2)
Quarter: 2024Q1

REPORT INFORMATION
  Report Type: Other
  Country: US (occurrence: None)
  Receive Date: 20230921
  Receipt Date: 20240105
  Transmission Date: 20240410
  Serious: Yes (Hospitalization)
  Sender: FDA-Public Use
  Company Number: US-ROCHE-3421026

PATIENT
  Age: 65 Year
  Sex: Female
  Weight: 117.13 kg

DRUGS (1)
  1. OCREVUS [Suspect]
     Active Substance: OCRELIZUMAB
     Indication: Relapsing multiple sclerosis
     Dosage: DATE OF TREATMENT: 11/DEC/2017, 28/JAN/2022, 28/JUL/2022, 16/JAN/2023 AND 20/SEP/2023
     Route: 042
     Dates: start: 20171211

REACTIONS (5)
  - Fall [Unknown]
  - Femur fracture [Recovered/Resolved]
  - COVID-19 [Not Recovered/Not Resolved]
  - Rubber sensitivity [Not Recovered/Not Resolved]
  - Gait disturbance [Unknown]

NARRATIVE: CASE EVENT DATE: 20230515
